FAERS Safety Report 4527274-0 (Version None)
Quarter: 2004Q4

REPORT INFORMATION
  Report Type: 
  Country: None (occurrence: None)
  Receive Date: 20041130
  Receipt Date: 20040902
  Transmission Date: 20050328
  Serious: No
  Sender: FDA-Public Use
  Company Number: FABR-10763

PATIENT
  Age: 34 Year
  Sex: Male
  Weight: 100.2449 kg

DRUGS (7)
  1. FABRAZYME [Suspect]
     Indication: FABRY'S DISEASE
     Dosage: 105 MG Q2WKS IV
     Route: 042
     Dates: start: 20040517
  2. BENICAR [Concomitant]
  3. TEGRETOL [Concomitant]
  4. NEURONTIN [Concomitant]
  5. OXYCONTIN [Concomitant]
  6. ACETAMINOPHEN [Concomitant]
  7. BENADRYL [Concomitant]

REACTIONS (4)
  - CHILLS [None]
  - PAIN [None]
  - PYREXIA [None]
  - TOTAL LUNG CAPACITY DECREASED [None]
